FAERS Safety Report 23857602 (Version 1)
Quarter: 2024Q2

REPORT INFORMATION
  Report Type: Spontaneous
  Country: US (occurrence: US)
  Receive Date: 20240515
  Receipt Date: 20240515
  Transmission Date: 20240716
  Serious: Yes (Life-Threatening, Hospitalization)
  Sender: FDA-Public Use
  Company Number: US-MYLANLABS-2024M1042754

PATIENT
  Age: 36 Year
  Sex: Female

DRUGS (1)
  1. METHIMAZOLE [Suspect]
     Active Substance: METHIMAZOLE
     Indication: Graves^ disease
     Dosage: UNK
     Route: 065

REACTIONS (8)
  - Subcutaneous abscess [Recovered/Resolved]
  - Spinal cord abscess [Recovered/Resolved]
  - Serratia infection [Recovered/Resolved]
  - Bacteraemia [Recovered/Resolved]
  - Septic shock [Recovered/Resolved]
  - Encephalopathy [Recovered/Resolved]
  - Bone marrow failure [Recovered/Resolved]
  - Agranulocytosis [Recovered/Resolved]
